FAERS Safety Report 22182514 (Version 1)
Quarter: 2023Q2

REPORT INFORMATION
  Report Type: Spontaneous
  Country: FR (occurrence: FR)
  Receive Date: 20230406
  Receipt Date: 20230406
  Transmission Date: 20230721
  Serious: Yes (Hospitalization)
  Sender: FDA-Public Use
  Company Number: None

PATIENT
  Age: 74 Year
  Sex: Male
  Weight: 54 kg

DRUGS (3)
  1. POSACONAZOLE [Suspect]
     Active Substance: POSACONAZOLE
     Indication: Post procedural infection
     Route: 065
     Dates: start: 20230209, end: 20230217
  2. DOXYCYCLINE [Suspect]
     Active Substance: DOXYCYCLINE
     Indication: Post procedural infection
     Route: 065
     Dates: start: 20230209, end: 20230217
  3. IXPRIM [Suspect]
     Active Substance: ACETAMINOPHEN\TRAMADOL HYDROCHLORIDE
     Indication: Post procedural infection
     Route: 065
     Dates: start: 20230207, end: 20230217

REACTIONS (2)
  - Cholestasis [Recovered/Resolved]
  - Hepatic cytolysis [Recovered/Resolved]

NARRATIVE: CASE EVENT DATE: 20230217
